FAERS Safety Report 14572738 (Version 2)
Quarter: 2018Q2

REPORT INFORMATION
  Report Type: Report from Study
  Country: US (occurrence: US)
  Receive Date: 20180226
  Receipt Date: 20180412
  Transmission Date: 20180711
  Serious: Yes (Hospitalization)
  Sender: FDA-Public Use
  Company Number: US-EISAI MEDICAL RESEARCH-EC-2018-036406

PATIENT
  Age: 68 Year
  Sex: Male
  Weight: 91.63 kg

DRUGS (21)
  1. CALCIUM CARB-CHOLECALCIFEROL [Concomitant]
  2. OMEPRAZOLE. [Concomitant]
     Active Substance: OMEPRAZOLE
  3. FENOFIBRATE. [Concomitant]
     Active Substance: FENOFIBRATE
  4. LOPERAMIDE [Concomitant]
     Active Substance: LOPERAMIDE
  5. MULTIPLE VITAMIN [Concomitant]
     Active Substance: VITAMINS
  6. HYDROCHLOROTHIAZIDE. [Concomitant]
     Active Substance: HYDROCHLOROTHIAZIDE
  7. NIFEDIPINE. [Concomitant]
     Active Substance: NIFEDIPINE
  8. DIPHENOXYLATE-ATROPINE [Concomitant]
     Active Substance: ATROPINE\DIPHENOXYLATE
  9. GLUCOSAMINE-CHONDROITIN [Concomitant]
     Active Substance: CHONDROITIN SULFATE (BOVINE)\GLUCOSAMINE SULFATE
  10. ASPIRIN. [Concomitant]
     Active Substance: ASPIRIN
  11. CELECOXIB. [Concomitant]
     Active Substance: CELECOXIB
  12. POTASSIUM CHLORIDE. [Concomitant]
     Active Substance: POTASSIUM CHLORIDE
  13. TAMSULOSIN [Concomitant]
     Active Substance: TAMSULOSIN
  14. CHOLECALCIFEROL [Concomitant]
     Active Substance: CHOLECALCIFEROL
  15. LENVATINIB [Suspect]
     Active Substance: LENVATINIB
     Indication: THYROID CANCER
     Dosage: BLINDED DOSAGE
     Route: 048
     Dates: start: 20170711, end: 20180218
  16. LEVOTHYROXINE. [Concomitant]
     Active Substance: LEVOTHYROXINE
  17. LOSARTAN. [Concomitant]
     Active Substance: LOSARTAN
  18. CALCITRIOL. [Concomitant]
     Active Substance: CALCITRIOL
  19. VITAMIN D [Concomitant]
     Active Substance: CHOLECALCIFEROL
  20. GINKGO BILOBA [Concomitant]
     Active Substance: GINKGO
  21. LABETALOL [Concomitant]
     Active Substance: LABETALOL\LABETALOL HYDROCHLORIDE

REACTIONS (1)
  - Pneumatosis intestinalis [Recovered/Resolved]

NARRATIVE: CASE EVENT DATE: 20180219
